FAERS Safety Report 4647304-5 (Version None)
Quarter: 2005Q2

REPORT INFORMATION
  Report Type: 
  Country: None (occurrence: None)
  Receive Date: 20050426
  Receipt Date: 20050418
  Transmission Date: 20051028
  Serious: Yes (Hospitalization)
  Sender: FDA-Public Use
  Company Number: 05H-062-0297897-00

PATIENT
  Age: 73 Year
  Sex: Male

DRUGS (1)
  1. POTASSIUM CHLORIDE [Suspect]
     Indication: DRUG USE FOR UNKNOWN INDICATION
     Dosage: 20 ML, PER HOUR, INTRAVENOUS INFUSION
     Route: 042

REACTIONS (5)
  - ARTERIAL INJURY [None]
  - CATHETER RELATED COMPLICATION [None]
  - EXTRAVASATION [None]
  - SKIN NECROSIS [None]
  - SWELLING [None]
